FAERS Safety Report 4737365-7 (Version None)
Quarter: 2005Q3

REPORT INFORMATION
  Report Type: 
  Country: None (occurrence: None)
  Receive Date: 20050805
  Receipt Date: 20050727
  Transmission Date: 20060218
  Serious: Yes (Other)
  Sender: FDA-Public Use
  Company Number: 2005010706

PATIENT
  Age: 84 Year
  Sex: Female
  Weight: 65.318 kg

DRUGS (4)
  1. BEXTRA [Suspect]
     Indication: ARTHRALGIA
     Dosage: 20 MG (20 MG, 1 IN 1 D) ORAL
     Route: 048
     Dates: start: 20040820
  2. INSULIN [Concomitant]
  3. TRICOR [Concomitant]
  4. PLAVIX [Concomitant]

REACTIONS (8)
  - CEREBROVASCULAR ACCIDENT [None]
  - COMMUNICATION DISORDER [None]
  - CONFUSIONAL STATE [None]
  - IMPAIRED DRIVING ABILITY [None]
  - MALAISE [None]
  - PALLOR [None]
  - RASH PRURITIC [None]
  - STARING [None]
